FAERS Safety Report 23555694 (Version 1)
Quarter: 2024Q1

REPORT INFORMATION
  Report Type: Spontaneous
  Country: US (occurrence: US)
  Receive Date: 20240222
  Receipt Date: 20240222
  Transmission Date: 20240409
  Serious: No
  Sender: FDA-Public Use
  Company Number: US-SANDOZ-SDZ2024US017929

PATIENT
  Sex: Female

DRUGS (1)
  1. RECLAST [Suspect]
     Active Substance: ZOLEDRONIC ACID
     Indication: Product used for unknown indication
     Route: 065

REACTIONS (7)
  - Pain in jaw [Unknown]
  - Ear pain [Unknown]
  - Hypertension [Unknown]
  - Arthralgia [Unknown]
  - Fatigue [Unknown]
  - Nausea [Unknown]
  - Pain [Unknown]
